FAERS Safety Report 8336886-8 (Version None)
Quarter: 2012Q2

REPORT INFORMATION
  Report Type: 
  Country: None (occurrence: None)
  Receive Date: 20120504
  Receipt Date: 20110722
  Transmission Date: 20120825
  Serious: No
  Sender: FDA-Public Use
  Company Number: US-TEVA-2011002308

PATIENT
  Sex: Female
  Weight: 65.83 kg

DRUGS (3)
  1. COPAXONE [Concomitant]
     Dates: start: 20100101
  2. NUVIGIL [Suspect]
     Indication: FATIGUE
     Dosage: 150 MILLIGRAM;
     Route: 048
     Dates: start: 20110420
  3. LAMISIL [Concomitant]
     Dates: start: 20110401

REACTIONS (4)
  - DRUG INEFFECTIVE FOR UNAPPROVED INDICATION [None]
  - NAUSEA [None]
  - HANGOVER [None]
  - VOMITING [None]
